FAERS Safety Report 8825080 (Version 2)
Quarter: 2013Q1

REPORT INFORMATION
  Report Type: Spontaneous
  Country: US (occurrence: US)
  Receive Date: 20121004
  Receipt Date: 20130220
  Transmission Date: 20140127
  Serious: Yes (Death)
  Sender: FDA-Public Use
  Company Number: US-ROCHE-1134665

PATIENT
  Age: 75 Year
  Sex: Female

DRUGS (2)
  1. RITUXAN [Suspect]
     Indication: HODGKIN^S DISEASE
     Route: 042
     Dates: start: 20040401, end: 20040426
  2. RITUXAN [Suspect]
     Indication: OFF LABEL USE

REACTIONS (3)
  - Death [Fatal]
  - Rash pruritic [Recovered/Resolved]
  - Purpura [Recovered/Resolved]
